FAERS Safety Report 20333378 (Version 1)
Quarter: 2022Q1

REPORT INFORMATION
  Report Type: Spontaneous
  Country: US (occurrence: US)
  Receive Date: 20220113
  Receipt Date: 20220113
  Transmission Date: 20220423
  Serious: No
  Sender: FDA-Public Use
  Company Number: US-MYLANLABS-2021M1090422

PATIENT
  Sex: Female

DRUGS (1)
  1. WIXELA INHUB [Suspect]
     Active Substance: FLUTICASONE PROPIONATE\SALMETEROL XINAFOATE
     Indication: Cardiac disorder
     Dosage: 250/50 MICROGRAM,QD,1 PUFF PER DAY
     Route: 055
     Dates: start: 202105

REACTIONS (4)
  - Product use in unapproved indication [Unknown]
  - Device delivery system issue [Unknown]
  - Product quality issue [Unknown]
  - Device malfunction [Unknown]

NARRATIVE: CASE EVENT DATE: 20210501
